FAERS Safety Report 6130662-2 (Version None)
Quarter: 2009Q1

REPORT INFORMATION
  Report Type: 
  Country: None (occurrence: None)
  Receive Date: 20090323
  Receipt Date: 20090308
  Transmission Date: 20090719
  Serious: Yes (Other)
  Sender: FDA-Public Use
  Company Number: 2007S1003878

PATIENT
  Age: 61 Year
  Sex: Female
  Weight: 91.6266 kg

DRUGS (11)
  1. PHOSPHOSODA FLAVOR NOT SPECIFIED [Suspect]
     Indication: COLONOSCOPY
     Dosage: 45 ML;TOTAL;PO
     Route: 048
     Dates: start: 20030706, end: 20030706
  2. PHOSPHOSODA FLAVOR NOT SPECIFIED [Suspect]
     Indication: ENDOSCOPY
     Dosage: 45 ML;TOTAL;PO
     Route: 048
     Dates: start: 20030706, end: 20030706
  3. AMARYL [Concomitant]
  4. METFORMIN [Concomitant]
  5. NORVASC [Concomitant]
  6. ACCUPRIL [Concomitant]
  7. ATENOLOL [Concomitant]
  8. NEXIUM [Concomitant]
  9. SYNTHROID [Concomitant]
  10. GLUCOPHAGE [Concomitant]
  11. ARTHROTEC /00372302/ [Concomitant]

REACTIONS (6)
  - DIALYSIS [None]
  - DIARRHOEA [None]
  - MALAISE [None]
  - NAUSEA [None]
  - RENAL FAILURE ACUTE [None]
  - RENAL FAILURE CHRONIC [None]
